FAERS Safety Report 26022623 (Version 1)
Quarter: 2025Q4

REPORT INFORMATION
  Report Type: Spontaneous
  Country: US (occurrence: None)
  Receive Date: 20251110
  Receipt Date: 20251110
  Transmission Date: 20260118
  Serious: Yes (Hospitalization)
  Sender: FDA-CTU
  Company Number: None

PATIENT
  Age: 77 Year
  Sex: Male

DRUGS (1)
  1. TEZSPIRE [Suspect]
     Active Substance: TEZEPELUMAB-EKKO
     Indication: Asthma
     Dosage: 210MG EVERY 4 WEEKS ?

REACTIONS (7)
  - Disorientation [None]
  - Pericardial effusion [None]
  - Pulmonary oedema [None]
  - Dyspnoea [None]
  - Injection site erythema [None]
  - Throat irritation [None]
  - Dysphonia [None]
